FAERS Safety Report 8088375-6 (Version None)
Quarter: 2012Q1

REPORT INFORMATION
  Report Type: 
  Country: None (occurrence: None)
  Receive Date: 20120128
  Receipt Date: 20110527
  Transmission Date: 20120608
  Serious: Yes (Other)
  Sender: FDA-Public Use
  Company Number: US-ABBOTT-11P-163-0729413-00

PATIENT
  Sex: Male

DRUGS (2)
  1. HUMIRA [Suspect]
     Indication: CROHN'S DISEASE
     Dates: start: 20070301
  2. IMURAN [Concomitant]
     Indication: CROHN'S DISEASE

REACTIONS (4)
  - SINUSITIS [None]
  - INJECTION SITE PAIN [None]
  - ARTHRITIS [None]
  - INJECTION SITE HAEMORRHAGE [None]
